FAERS Safety Report 12870521 (Version 1)
Quarter: 2016Q4

REPORT INFORMATION
  Report Type: Spontaneous
  Country: JP (occurrence: JP)
  Receive Date: 20161021
  Receipt Date: 20161021
  Transmission Date: 20170207
  Serious: Yes (Death, Other)
  Sender: FDA-Public Use
  Company Number: JP-PFIZER INC-2016487183

PATIENT

DRUGS (2)
  1. METHOTREXATE SODIUM. [Suspect]
     Active Substance: METHOTREXATE SODIUM
     Indication: CENTRAL NERVOUS SYSTEM LYMPHOMA
     Dosage: 3.5 G/M2 OVER 4 HOURS
  2. VINCRISTINE [Concomitant]
     Active Substance: VINCRISTINE
     Dosage: OVER 4 HOURS

REACTIONS (2)
  - Leukoencephalopathy [Unknown]
  - Platelet count decreased [Fatal]
